FAERS Safety Report 16383459 (Version 1)
Quarter: 2019Q2

REPORT INFORMATION
  Report Type: Spontaneous
  Country: US (occurrence: US)
  Receive Date: 20190603
  Receipt Date: 20190603
  Transmission Date: 20190711
  Serious: Yes (Other)
  Sender: FDA-Public Use
  Company Number: 12046373

PATIENT

DRUGS (6)
  1. DEXAMETHASONE. [Concomitant]
     Active Substance: DEXAMETHASONE
  2. ONDANSETRON [Concomitant]
     Active Substance: ONDANSETRON
  3. KETOROLAC [Concomitant]
     Active Substance: KETOROLAC\KETOROLAC TROMETHAMINE
  4. EXPAREL [Suspect]
     Active Substance: BUPIVACAINE
     Indication: NERVE BLOCK
  5. ALVIMOPAN [Concomitant]
     Active Substance: ALVIMOPAN
     Route: 048
  6. ACETAMINOPHEN. [Concomitant]
     Active Substance: ACETAMINOPHEN
     Route: 048

REACTIONS (12)
  - Freezing phenomenon [Unknown]
  - Dizziness [Unknown]
  - Hyperhidrosis [Unknown]
  - Ileus [Unknown]
  - Pain [Unknown]
  - Pruritus [Unknown]
  - Sepsis [Unknown]
  - Acute kidney injury [Unknown]
  - Urinary tract infection [Unknown]
  - Postoperative wound infection [Unknown]
  - Vomiting [Unknown]
  - Urinary retention [Unknown]
